FAERS Safety Report 5749696 (Version 12)
Quarter: 2014Q2

REPORT INFORMATION
  Report Type: Spontaneous
  Country: US (occurrence: US)
  Receive Date: 20050302
  Receipt Date: 20140426
  Transmission Date: 20141212
  Serious: Yes (Hospitalization, Disabling, Other)
  Sender: FDA-Public Use
  Company Number: US-ROCHE-396778

PATIENT
  Age: 17 Year
  Sex: Male
  Weight: 59 kg

DRUGS (3)
  1. ACCUTANE [Suspect]
     Indication: ACNE
     Route: 048
     Dates: start: 19990903, end: 19990917
  2. ACCUTANE [Suspect]
     Route: 048
     Dates: start: 19990917, end: 19991008
  3. ACCUTANE [Suspect]
     Route: 048
     Dates: start: 19991008, end: 199911

REACTIONS (22)
  - Crohn^s disease [Not Recovered/Not Resolved]
  - Internal injury [Unknown]
  - Dry skin [Unknown]
  - Gastrointestinal disorder [Unknown]
  - Inflammatory bowel disease [Unknown]
  - Intestinal haemorrhage [Unknown]
  - Irritable bowel syndrome [Unknown]
  - Cyst [Unknown]
  - Rectal haemorrhage [Not Recovered/Not Resolved]
  - Small intestinal obstruction [Unknown]
  - Anal fistula [Unknown]
  - Abdominal pain [Unknown]
  - Haematochezia [Unknown]
  - Intestinal obstruction [Unknown]
  - Nausea [Unknown]
  - Vomiting [Unknown]
  - Diarrhoea [Unknown]
  - Intestinal dilatation [Unknown]
  - Small intestinal obstruction [Unknown]
  - Enterocolonic fistula [Unknown]
  - Weight decreased [Unknown]
  - Fistula [Unknown]
